FAERS Safety Report 9518978 (Version 2)
Quarter: 2013Q4

REPORT INFORMATION
  Report Type: Spontaneous
  Country: DE (occurrence: DE)
  Receive Date: 20130912
  Receipt Date: 20131031
  Transmission Date: 20140711
  Serious: No
  Sender: FDA-Public Use
  Company Number: DE-ELI_LILLY_AND_COMPANY-DE201309000780

PATIENT
  Sex: Female

DRUGS (8)
  1. CYMBALTA [Suspect]
     Indication: DEPRESSION
     Dosage: 30 MG, UNKNOWN
     Route: 048
     Dates: start: 20120523, end: 20120705
  2. CYMBALTA [Suspect]
     Indication: ANXIETY
     Dosage: 60 MG, UNKNOWN
     Route: 048
     Dates: start: 20120706
  3. CYMBALTA [Suspect]
     Dosage: 30 MG, UNKNOWN
     Route: 048
  4. CYMBALTA [Suspect]
     Dosage: 60 MG, QD
  5. LYRICA [Concomitant]
     Dosage: 25 MG, UNKNOWN
     Route: 065
     Dates: start: 20120329
  6. LYRICA [Concomitant]
     Dosage: 75 MG, BID
     Route: 065
     Dates: start: 20120424
  7. BISOPROLOL [Concomitant]
     Dosage: 5 MG, BID
     Route: 065
     Dates: start: 20130830
  8. MICARDIS PLUS [Concomitant]
     Dosage: 1 DF, EACH MORNING
     Route: 065
     Dates: start: 20130830

REACTIONS (1)
  - Hepatic steatosis [Recovered/Resolved]
